FAERS Safety Report 8877554 (Version 1)
Quarter: 2012Q4

REPORT INFORMATION
  Report Type: 
  Country: FR (occurrence: FR)
  Receive Date: 20121024
  Receipt Date: 20121024
  Transmission Date: 20130627
  Serious: Yes (Hospitalization, Other)
  Sender: FDA-Public Use
  Company Number: FR-PFIZER INC-2012265467

PATIENT
  Age: 83 Year
  Sex: Female

DRUGS (9)
  1. CORDARONE [Suspect]
     Indication: ARRHYTHMIA
     Dosage: 200 mg 5/7 days
     Route: 048
  2. PREVISCAN [Interacting]
     Indication: PROPHYLAXIS
     Dosage: 5 mg even days - 10 mg odd days
     Route: 048
     Dates: start: 20120813, end: 20120826
  3. PRAVASTATIN SODIUM [Interacting]
     Indication: DYSLIPIDAEMIA
     Dosage: 5 or 10 mg daily in alternance
     Route: 048
     Dates: end: 20120906
  4. NIDREL [Concomitant]
     Dosage: UNK
     Dates: end: 20120826
  5. XANAX [Concomitant]
     Dosage: UNK
  6. BISOPROLOL [Concomitant]
     Dosage: UNK
  7. MOPRAL [Concomitant]
     Indication: GASTRIC ULCER
     Dosage: 20 mg twice daily
  8. AUGMENTIN [Concomitant]
     Indication: URINARY TRACT INFECTION
     Dosage: UNK
     Dates: start: 20120821, end: 20120828
  9. SINTROM [Concomitant]
     Dosage: UNK
     Dates: end: 20120813

REACTIONS (4)
  - Drug interaction [Recovered/Resolved]
  - Melaena [Recovered/Resolved]
  - Anaemia [Recovered/Resolved]
  - Renal failure [Unknown]
